FAERS Safety Report 23556324 (Version 1)
Quarter: 2024Q1

REPORT INFORMATION
  Report Type: Spontaneous
  Country: US (occurrence: US)
  Receive Date: 20240223
  Receipt Date: 20240223
  Transmission Date: 20240410
  Serious: Yes (Other)
  Sender: FDA-Public Use
  Company Number: US-TOLMAR, INC.-24US047019

PATIENT
  Age: 62 Year
  Sex: Male

DRUGS (5)
  1. ELIGARD [Suspect]
     Active Substance: LEUPROLIDE ACETATE
     Indication: Adenocarcinoma of salivary gland
     Dosage: UNK
  2. ELIGARD [Suspect]
     Active Substance: LEUPROLIDE ACETATE
     Indication: Adenocarcinoma of salivary gland
     Dosage: UNK
  3. BICALUTAMIDE [Suspect]
     Active Substance: BICALUTAMIDE
     Indication: Adenocarcinoma of salivary gland
     Dosage: UNK
  4. ABIRATERONE [Suspect]
     Active Substance: ABIRATERONE
     Indication: Adenocarcinoma of salivary gland
     Dosage: UNK
  5. PREDNISONE [Suspect]
     Active Substance: PREDNISONE
     Indication: Adenocarcinoma of salivary gland
     Dosage: UNK

REACTIONS (2)
  - Disease progression [Unknown]
  - Off label use [Unknown]
